FAERS Safety Report 8808678 (Version 1)
Quarter: 2012Q4

REPORT INFORMATION
  Report Type: Spontaneous
  Country: US (occurrence: None)
  Receive Date: 20120921
  Receipt Date: 20120921
  Transmission Date: 20130627
  Serious: Yes (Life-Threatening, Other)
  Sender: FDA-Public Use
  Company Number: None

PATIENT
  Age: 68 Year
  Sex: Female
  Weight: 83.92 kg

DRUGS (2)
  1. PREVACID [Suspect]
     Indication: ACID REFLUX (ESOPHAGEAL)
     Dates: start: 201105
  2. OMEPRAZOLE [Suspect]
     Indication: ACID REFLUX (ESOPHAGEAL)

REACTIONS (1)
  - Blood chromogranin A increased [None]
